FAERS Safety Report 9902350 (Version 2)
Quarter: 2014Q1

REPORT INFORMATION
  Report Type: Spontaneous
  Country: US (occurrence: US)
  Receive Date: 20140217
  Receipt Date: 20140217
  Transmission Date: 20141002
  Serious: No
  Sender: FDA-Public Use
  Company Number: US-GILEAD-2011-0044168

PATIENT
  Sex: Female

DRUGS (3)
  1. LETAIRIS [Suspect]
     Indication: PULMONARY ARTERIAL HYPERTENSION
     Route: 048
     Dates: start: 20110830
  2. ADCIRCA [Suspect]
  3. TYVASO [Suspect]
     Indication: PULMONARY ARTERIAL HYPERTENSION

REACTIONS (6)
  - Urinary tract infection [Unknown]
  - Diarrhoea [Unknown]
  - Oxygen saturation decreased [Unknown]
  - Insomnia [Unknown]
  - Oedema [Unknown]
  - Dyspnoea [Unknown]
